FAERS Safety Report 21750279 (Version 1)
Quarter: 2022Q4

REPORT INFORMATION
  Report Type: Spontaneous
  Country: IT (occurrence: IT)
  Receive Date: 20221219
  Receipt Date: 20221219
  Transmission Date: 20230112
  Serious: Yes (Other)
  Sender: FDA-Public Use
  Company Number: IT-BAXTER-2022BAX026666

PATIENT
  Age: 78 Year
  Sex: Female

DRUGS (8)
  1. PREDNISOLONE [Suspect]
     Active Substance: PREDNISOLONE
     Indication: Diffuse large B-cell lymphoma
     Dosage: UNK, CYCLIC (6 CYCLES), FORMULATION UNKNOWN
     Route: 065
     Dates: start: 202107
  2. POLATUZUMAB VEDOTIN [Suspect]
     Active Substance: POLATUZUMAB VEDOTIN
     Indication: Diffuse large B-cell lymphoma
     Dosage: UNKNOWN FREQ, FORMULATION UNKNOWN
     Route: 065
     Dates: start: 202202
  3. VINCRISTINE [Suspect]
     Active Substance: VINCRISTINE
     Indication: Diffuse large B-cell lymphoma
     Dosage: CYCLIC (6 CYCLES)
     Route: 065
     Dates: start: 202107
  4. RITUXIMAB [Suspect]
     Active Substance: RITUXIMAB
     Indication: Diffuse large B-cell lymphoma
     Dosage: UNKNOWN FREQUENCY, FORMULATION UNKNOWN
     Route: 065
     Dates: start: 202202
  5. RITUXIMAB [Suspect]
     Active Substance: RITUXIMAB
     Dosage: UNK, CYCLIC (6 CYCLES), FORMULATION UNKNOWN
     Route: 065
     Dates: start: 202107
  6. BENDAMUSTINE HYDROCHLORIDE [Suspect]
     Active Substance: BENDAMUSTINE HYDROCHLORIDE
     Indication: Diffuse large B-cell lymphoma
     Dosage: CYCLIC
     Route: 042
     Dates: start: 202202
  7. DOXORUBICIN [Suspect]
     Active Substance: DOXORUBICIN
     Indication: Diffuse large B-cell lymphoma
     Dosage: CYCLIC (6 CYCLES), FORMULATION UNKNOWN
     Route: 065
     Dates: start: 202107
  8. CYCLOPHOSPHAMIDE [Suspect]
     Active Substance: CYCLOPHOSPHAMIDE
     Indication: Diffuse large B-cell lymphoma
     Dosage: CYCLIC (6 CYCLES), FORMULATION UNKNOWN
     Route: 065
     Dates: start: 202107

REACTIONS (7)
  - Thrombocytopenia [Unknown]
  - Rash erythematous [Unknown]
  - Febrile neutropenia [Unknown]
  - Neutropenia [Unknown]
  - Ill-defined disorder [Unknown]
  - Anaemia [Unknown]
  - Off label use [Unknown]

NARRATIVE: CASE EVENT DATE: 20220201
